FAERS Safety Report 9203689 (Version 1)
Quarter: 2013Q1

REPORT INFORMATION
  Report Type: Spontaneous
  Country: US (occurrence: None)
  Receive Date: 20120709
  Receipt Date: 20120709
  Transmission Date: 20140127
  Serious: Yes (Other)
  Sender: FDA-Public Use
  Company Number: PHEH2011US00834

PATIENT
  Age: 63 Year
  Sex: Male
  Weight: 74.4 kg

DRUGS (4)
  1. GLEEVEC (IMATINIB) [Suspect]
     Indication: CHRONIC MYELOID LEUKAEMIA
     Route: 048
     Dates: start: 20110328
  2. LIPITOR (ATORVASTATIN CALCIUM) [Concomitant]
  3. NEXIAM (ESOMEPRAZOLE) [Concomitant]
  4. ZOFRAN (ONDANSETRON HYDROCHLORIDE) [Concomitant]

REACTIONS (5)
  - Nausea [None]
  - Swelling [None]
  - Pyrexia [None]
  - Muscle spasms [None]
  - Fluid retention [None]
